FAERS Safety Report 21302877 (Version 2)
Quarter: 2022Q3

REPORT INFORMATION
  Report Type: Report from Study
  Country: US (occurrence: US)
  Receive Date: 20220907
  Receipt Date: 20220919
  Transmission Date: 20221027
  Serious: Yes (Other)
  Sender: FDA-Public Use
  Company Number: US-TEVA-2022-US-2070251

PATIENT

DRUGS (1)
  1. MYCOPHENOLATE MOFETIL [Suspect]
     Active Substance: MYCOPHENOLATE MOFETIL
     Indication: Lichen planus
     Route: 065

REACTIONS (4)
  - Eye pain [Unknown]
  - Swollen tongue [Unknown]
  - Headache [Unknown]
  - Therapy non-responder [Unknown]
